FAERS Safety Report 16638617 (Version 1)
Quarter: 2019Q3

REPORT INFORMATION
  Report Type: Spontaneous
  Country: IT (occurrence: IT)
  Receive Date: 20190726
  Receipt Date: 20190726
  Transmission Date: 20191004
  Serious: Yes (Death)
  Sender: FDA-Public Use
  Company Number: IT-PFIZER INC-2019119723

PATIENT
  Age: 57 Year
  Sex: Female
  Weight: 65 kg

DRUGS (1)
  1. HEPARIN SODIUM. [Suspect]
     Active Substance: HEPARIN SODIUM
     Indication: EXTRACORPOREAL CIRCULATION
     Dosage: 15 KIU, 1X/DAY
     Dates: start: 20190203, end: 20190206

REACTIONS (1)
  - Cerebral haemorrhage [Fatal]

NARRATIVE: CASE EVENT DATE: 20190206
